FAERS Safety Report 7867554-4 (Version None)
Quarter: 2011Q4

REPORT INFORMATION
  Report Type: 
  Country: None (occurrence: None)
  Receive Date: 20111028
  Receipt Date: 20111022
  Transmission Date: 20120403
  Serious: Yes (Hospitalization)
  Sender: FDA-Public Use
  Company Number: PHEH2011US06632

PATIENT
  Sex: Female
  Weight: 86.168 kg

DRUGS (3)
  1. GILENYA [Suspect]
     Indication: MULTIPLE SCLEROSIS
     Dosage: 0.5 MG, QD
     Route: 048
     Dates: start: 20111003, end: 20111012
  2. PROVIGIL [Concomitant]
     Indication: MULTIPLE SCLEROSIS
     Dosage: 2 DF, DAILY
     Route: 048
  3. SINGULAIR [Concomitant]
     Indication: HYPERSENSITIVITY
     Dosage: 20 MG, DAILY
     Route: 048

REACTIONS (3)
  - CHEST PAIN [None]
  - CHEST DISCOMFORT [None]
  - DYSPNOEA [None]
